FAERS Safety Report 21614129 (Version 2)
Quarter: 2023Q2

REPORT INFORMATION
  Report Type: Report from Study
  Country: AR (occurrence: AR)
  Receive Date: 20221118
  Receipt Date: 20230409
  Transmission Date: 20230722
  Serious: Yes (Life-Threatening, Other)
  Sender: FDA-Public Use
  Company Number: AR-002147023-NVSC2022AR259436

PATIENT
  Sex: Female

DRUGS (4)
  1. KISQALI [Suspect]
     Active Substance: RIBOCICLIB
     Indication: Breast cancer metastatic
     Dosage: 600 MG, TID
     Route: 048
     Dates: start: 20220915, end: 20230301
  2. LETROZOLE [Suspect]
     Active Substance: LETROZOLE
     Indication: Product used for unknown indication
     Dosage: UNK
     Route: 065
  3. IRON [Suspect]
     Active Substance: IRON
     Indication: Product used for unknown indication
     Dosage: UNK
     Route: 065
  4. CALCIUM [Suspect]
     Active Substance: CALCIUM
     Indication: Product used for unknown indication
     Dosage: UNK
     Route: 065

REACTIONS (7)
  - Blood iron abnormal [Unknown]
  - Hepatitis [Unknown]
  - Pain in extremity [Unknown]
  - Malaise [Unknown]
  - Pain [Unknown]
  - Hepatic steatosis [Unknown]
  - Inappropriate schedule of product administration [Unknown]
